FAERS Safety Report 16932103 (Version 6)
Quarter: 2019Q4

REPORT INFORMATION
  Report Type: Spontaneous
  Country: IT (occurrence: IT)
  Receive Date: 20191017
  Receipt Date: 20191231
  Transmission Date: 20200122
  Serious: Yes (Hospitalization)
  Sender: FDA-Public Use
  Company Number: IT-CELGENEUS-ITA-20191005652

PATIENT
  Age: 76 Year
  Sex: Male
  Weight: 74 kg

DRUGS (25)
  1. AZACITIDINE. [Suspect]
     Active Substance: AZACITIDINE
     Dosage: 75 MILLIGRAM/SQ. METER
     Route: 058
     Dates: start: 20191125
  2. VENETOCLAX. [Concomitant]
     Active Substance: VENETOCLAX
     Dosage: 400 MILLIGRAM
     Route: 048
     Dates: start: 20191125
  3. POSACONAZOLE [Concomitant]
     Active Substance: POSACONAZOLE
     Indication: ANTIFUNGAL PROPHYLAXIS
     Dosage: 15 MILLILITER
     Route: 048
     Dates: start: 20180328, end: 20180404
  4. PREDNISONE. [Concomitant]
     Active Substance: PREDNISONE
     Indication: THROMBOCYTOPENIA
     Dosage: 2.5 MILLIGRAM
     Route: 048
     Dates: start: 20180523, end: 20180525
  5. PREDNISONE. [Concomitant]
     Active Substance: PREDNISONE
     Dosage: 2.5 MILLIGRAM
     Route: 048
     Dates: start: 20180526, end: 20180622
  6. PREDNISONE. [Concomitant]
     Active Substance: PREDNISONE
     Dosage: 1/2 CAPSULE
     Route: 048
     Dates: start: 20180622, end: 20180627
  7. NOVONORM [Concomitant]
     Active Substance: REPAGLINIDE
     Indication: DIABETES PROPHYLAXIS
     Dosage: 1 MILLIGRAM
     Route: 048
     Dates: start: 20191011
  8. POSACONAZOLE [Concomitant]
     Active Substance: POSACONAZOLE
     Dosage: 15 MILLILITER
     Route: 048
     Dates: start: 20180406
  9. VENETOCLAX. [Concomitant]
     Active Substance: VENETOCLAX
     Dosage: 400 MILLIGRAM
     Route: 048
     Dates: start: 20181126, end: 20190714
  10. PROPRANOLOL [Concomitant]
     Active Substance: PROPRANOLOL HYDROCHLORIDE
     Indication: HYPERTENSION
     Dosage: 20 MILLIGRAM
     Route: 048
     Dates: start: 1999
  11. PREDNISONE. [Concomitant]
     Active Substance: PREDNISONE
     Dosage: 10 MILLIGRAM
     Route: 048
     Dates: start: 20180627, end: 20180627
  12. VENETOCLAX. [Concomitant]
     Active Substance: VENETOCLAX
     Dosage: 50 MILLIGRAM
     Route: 048
     Dates: start: 20180411, end: 20181125
  13. RAMIPRIL. [Concomitant]
     Active Substance: RAMIPRIL
     Indication: HYPERTENSION
     Dosage: 2.5 MILLIGRAM
     Route: 048
     Dates: start: 1999
  14. PREDNISONE. [Concomitant]
     Active Substance: PREDNISONE
     Dosage: 25 MILLIGRAM
     Route: 048
     Dates: start: 20181119
  15. VENETOCLAX. [Concomitant]
     Active Substance: VENETOCLAX
     Dosage: 100 MILLIGRAM
     Route: 048
     Dates: start: 20190715, end: 20191011
  16. AMLODIPINE [Concomitant]
     Active Substance: AMLODIPINE BESYLATE
     Indication: CORONARY ARTERY DISEASE
     Dosage: 2.5 MILLIGRAM
     Route: 048
     Dates: start: 1999
  17. PREDNISONE. [Concomitant]
     Active Substance: PREDNISONE
     Indication: PROPHYLAXIS
     Dosage: 5 MILLIGRAM
     Route: 048
     Dates: start: 20180510, end: 20180522
  18. LACTULOSE. [Concomitant]
     Active Substance: LACTULOSE
     Indication: PROPHYLAXIS
     Dosage: 15 MILLIGRAM
     Route: 048
     Dates: start: 20180528
  19. INSULINA [Concomitant]
     Active Substance: INSULIN NOS
     Indication: DIABETES MELLITUS
     Dosage: 8 MILLILITER
     Route: 048
     Dates: start: 20191011
  20. VENETOCLAX. [Concomitant]
     Active Substance: VENETOCLAX
     Indication: ACUTE MYELOID LEUKAEMIA
     Dosage: 10 MILLIGRAM
     Route: 048
     Dates: start: 20180409, end: 20180409
  21. VENETOCLAX. [Concomitant]
     Active Substance: VENETOCLAX
     Dosage: 20 MILLIGRAM
     Route: 048
     Dates: start: 20180410, end: 20180410
  22. PANTOPRAZOLE [Concomitant]
     Active Substance: PANTOPRAZOLE
     Indication: GASTRITIS PROPHYLAXIS
     Dosage: 40 MILLIGRAM
     Route: 048
     Dates: start: 20180328
  23. PREDNISONE. [Concomitant]
     Active Substance: PREDNISONE
     Indication: PAIN PROPHYLAXIS
     Dosage: 10 MILLIGRAM
     Route: 048
     Dates: start: 20180504, end: 20180509
  24. BACTRIM [Concomitant]
     Active Substance: SULFAMETHOXAZOLE\TRIMETHOPRIM
     Indication: INFECTION PROPHYLAXIS
     Dosage: 160+ 800 MG
     Route: 048
     Dates: start: 20180510
  25. AZACITIDINE. [Suspect]
     Active Substance: AZACITIDINE
     Indication: ACUTE MYELOID LEUKAEMIA
     Dosage: 75 MILLIGRAM/SQ. METER
     Route: 058
     Dates: start: 20180409, end: 20190929

REACTIONS (2)
  - Bronchitis [Recovered/Resolved]
  - Pancytopenia [Recovered/Resolved]

NARRATIVE: CASE EVENT DATE: 20191011
